FAERS Safety Report 12922832 (Version 8)
Quarter: 2017Q2

REPORT INFORMATION
  Report Type: Report from Study
  Country: US (occurrence: US)
  Receive Date: 20161109
  Receipt Date: 20170525
  Transmission Date: 20170830
  Serious: Yes (Hospitalization)
  Sender: FDA-Public Use
  Company Number: US-BIOGEN-2016BI00313208

PATIENT
  Age: 54 Year
  Sex: Female

DRUGS (7)
  1. AVONEX [Suspect]
     Active Substance: INTERFERON BETA-1A
     Route: 042
     Dates: start: 201405, end: 201609
  2. AVONEX [Suspect]
     Active Substance: INTERFERON BETA-1A
     Route: 030
     Dates: start: 20141103, end: 20160826
  3. AVONEX [Suspect]
     Active Substance: INTERFERON BETA-1A
     Route: 030
     Dates: start: 201410, end: 201611
  4. TOPAMAX [Concomitant]
     Active Substance: TOPIRAMATE
     Indication: INTRACRANIAL PRESSURE INCREASED
     Route: 065
  5. AVONEX [Suspect]
     Active Substance: INTERFERON BETA-1A
     Indication: MULTIPLE SCLEROSIS
     Route: 030
     Dates: start: 20140314, end: 20140801
  6. AVONEX [Suspect]
     Active Substance: INTERFERON BETA-1A
     Route: 030
     Dates: start: 20141102, end: 20161102
  7. AVONEX [Suspect]
     Active Substance: INTERFERON BETA-1A
     Route: 042
     Dates: start: 201405

REACTIONS (10)
  - Arrhythmia [Unknown]
  - Incorrect route of drug administration [Recovered/Resolved]
  - Liver function test increased [Unknown]
  - Cholelithiasis [Recovered/Resolved]
  - Hepatic enzyme increased [Unknown]
  - Contusion [Unknown]
  - Speech disorder [Unknown]
  - Multiple sclerosis relapse [Recovered/Resolved]
  - Loss of bladder sensation [Unknown]
  - Hypoaesthesia [Not Recovered/Not Resolved]

NARRATIVE: CASE EVENT DATE: 20140801
